FAERS Safety Report 16399168 (Version 1)
Quarter: 2019Q2

REPORT INFORMATION
  Report Type: Spontaneous
  Country: US (occurrence: US)
  Receive Date: 20190501
  Receipt Date: 20190501
  Transmission Date: 20190711
  Serious: Yes (Hospitalization)
  Sender: FDA-Public Use
  Company Number: None

PATIENT
  Age: 62 Year
  Sex: Male

DRUGS (1)
  1. AMOXICILLIN. [Suspect]
     Active Substance: AMOXICILLIN
     Indication: SURGERY
     Dates: start: 20190212, end: 20190212

REACTIONS (5)
  - Rash [None]
  - Syncope [None]
  - Urticaria [None]
  - Hypotension [None]
  - Pruritus [None]

NARRATIVE: CASE EVENT DATE: 20190212
